FAERS Safety Report 23738172 (Version 2)
Quarter: 2024Q2

REPORT INFORMATION
  Report Type: Spontaneous
  Country: US (occurrence: US)
  Receive Date: 20240412
  Receipt Date: 20240429
  Transmission Date: 20240715
  Serious: Yes (Other)
  Sender: FDA-Public Use
  Company Number: US-ABBVIE-5709980

PATIENT
  Age: 57 Year
  Sex: Male

DRUGS (9)
  1. ACITRETIN [Suspect]
     Active Substance: ACITRETIN
     Indication: Keratosis follicular
     Dosage: DAILY DOSES VARIED FROM 10 TO 25 MG PER DAY
     Route: 048
     Dates: end: 202203
  2. ACITRETIN [Suspect]
     Active Substance: ACITRETIN
     Indication: Keratosis follicular
     Route: 048
     Dates: start: 201904
  3. ACITRETIN [Suspect]
     Active Substance: ACITRETIN
     Indication: Keratosis follicular
     Route: 048
  4. ACYCLOVIR [Concomitant]
     Active Substance: ACYCLOVIR
     Indication: Antiviral prophylaxis
     Route: 042
  5. ACYCLOVIR [Concomitant]
     Active Substance: ACYCLOVIR
     Indication: Antiviral prophylaxis
     Dosage: ON HOSPITAL DAY 4
     Route: 048
  6. ACYCLOVIR [Concomitant]
     Active Substance: ACYCLOVIR
     Indication: Antiviral prophylaxis
     Route: 065
     Dates: start: 201804
  7. ACYCLOVIR [Concomitant]
     Active Substance: ACYCLOVIR
     Indication: Antiviral prophylaxis
     Route: 042
  8. VALACYCLOVIR [Concomitant]
     Active Substance: VALACYCLOVIR HYDROCHLORIDE
     Indication: Herpes simplex
     Route: 065
  9. VALACYCLOVIR [Concomitant]
     Active Substance: VALACYCLOVIR HYDROCHLORIDE
     Indication: Herpes simplex
     Dosage: TIME INTERVAL: 0.33333333 DAYS: 10 DAY COURSE
     Route: 065

REACTIONS (1)
  - Superinfection [Unknown]
